FAERS Safety Report 11592653 (Version 4)
Quarter: 2015Q4

REPORT INFORMATION
  Report Type: Spontaneous
  Country: JP (occurrence: JP)
  Receive Date: 20151005
  Receipt Date: 20151204
  Transmission Date: 20160304
  Serious: Yes (Death, Hospitalization, Other)
  Sender: FDA-Public Use
  Company Number: JP-ASTELLAS-2015JP019771AA

PATIENT
  Age: 27 Year
  Sex: Female
  Weight: 54 kg

DRUGS (23)
  1. PROGRAF [Suspect]
     Active Substance: TACROLIMUS\TACROLIMUS ANHYDROUS
     Route: 042
     Dates: start: 20130913, end: 20130919
  2. PROGRAF [Suspect]
     Active Substance: TACROLIMUS\TACROLIMUS ANHYDROUS
     Dosage: 1.0 MG, ONCE DAILY
     Route: 042
     Dates: start: 20130920, end: 20130923
  3. CYCLOPHOSPHAMIDE. [Concomitant]
     Active Substance: CYCLOPHOSPHAMIDE
     Indication: BONE MARROW CONDITIONING REGIMEN
     Route: 065
  4. PROGRAF [Suspect]
     Active Substance: TACROLIMUS\TACROLIMUS ANHYDROUS
     Route: 042
     Dates: start: 20130814, end: 20130815
  5. PROGRAF [Suspect]
     Active Substance: TACROLIMUS\TACROLIMUS ANHYDROUS
     Route: 042
     Dates: start: 20130909, end: 20130912
  6. PREDNISOLONE. [Concomitant]
     Active Substance: PREDNISOLONE
     Indication: ACUTE GRAFT VERSUS HOST DISEASE
     Dosage: UNK UNK, UNKNOWN FREQ.
     Route: 065
  7. VIDARABINE [Concomitant]
     Active Substance: VIDARABINE
     Route: 065
     Dates: start: 20131010, end: 20131025
  8. MYCOPHENOLATE MOFETIL. [Concomitant]
     Active Substance: MYCOPHENOLATE MOFETIL
     Indication: CHRONIC GRAFT VERSUS HOST DISEASE
     Route: 048
     Dates: start: 20131002
  9. PROGRAF [Suspect]
     Active Substance: TACROLIMUS\TACROLIMUS ANHYDROUS
     Route: 042
     Dates: start: 20130816, end: 20130816
  10. PROGRAF [Suspect]
     Active Substance: TACROLIMUS\TACROLIMUS ANHYDROUS
     Dosage: 0.25 MG, ONCE DAILY
     Route: 042
     Dates: start: 20130930, end: 20131002
  11. VIDARABINE [Concomitant]
     Active Substance: VIDARABINE
     Indication: ADENOVIRAL HAEMORRHAGIC CYSTITIS
     Route: 065
     Dates: start: 20130912, end: 20130917
  12. VALGANCICLOVIR [Concomitant]
     Active Substance: VALGANCICLOVIR
     Route: 065
     Dates: start: 20131026, end: 20131124
  13. PROGRAF [Suspect]
     Active Substance: TACROLIMUS\TACROLIMUS ANHYDROUS
     Indication: PHILADELPHIA CHROMOSOME POSITIVE
     Route: 042
     Dates: start: 20130810, end: 20130811
  14. PROGRAF [Suspect]
     Active Substance: TACROLIMUS\TACROLIMUS ANHYDROUS
     Indication: ACUTE LYMPHOCYTIC LEUKAEMIA
     Route: 042
     Dates: start: 20130812, end: 20130813
  15. PROGRAF [Suspect]
     Active Substance: TACROLIMUS\TACROLIMUS ANHYDROUS
     Dosage: 0.7 MG, ONCE DAILY
     Route: 042
     Dates: start: 20130924, end: 20130926
  16. PROGRAF [Suspect]
     Active Substance: TACROLIMUS\TACROLIMUS ANHYDROUS
     Route: 042
     Dates: start: 20130817, end: 20130818
  17. PROGRAF [Suspect]
     Active Substance: TACROLIMUS\TACROLIMUS ANHYDROUS
     Dosage: 0.45 MG, ONCE DAILY
     Route: 042
     Dates: start: 20130927, end: 20130929
  18. METHOTREXATE [Suspect]
     Active Substance: METHOTREXATE
     Indication: PROPHYLAXIS AGAINST GRAFT VERSUS HOST DISEASE
     Dosage: UNK UNK, UNKNOWN FREQ.
     Route: 065
  19. PROGRAF [Suspect]
     Active Substance: TACROLIMUS\TACROLIMUS ANHYDROUS
     Indication: PROPHYLAXIS AGAINST GRAFT VERSUS HOST DISEASE
     Route: 042
     Dates: start: 20130807, end: 20130809
  20. PROGRAF [Suspect]
     Active Substance: TACROLIMUS\TACROLIMUS ANHYDROUS
     Dosage: 2.6 MG, ONCE DAILY
     Route: 042
     Dates: start: 20130819, end: 20130821
  21. PROGRAF [Suspect]
     Active Substance: TACROLIMUS\TACROLIMUS ANHYDROUS
     Route: 042
     Dates: start: 20130822, end: 20130903
  22. PROGRAF [Suspect]
     Active Substance: TACROLIMUS\TACROLIMUS ANHYDROUS
     Dosage: 2.1 MG, ONCE DAILY
     Route: 042
     Dates: start: 20130904, end: 20130908
  23. VALGANCICLOVIR [Concomitant]
     Active Substance: VALGANCICLOVIR
     Indication: ADENOVIRAL HAEMORRHAGIC CYSTITIS
     Route: 065
     Dates: start: 20130918, end: 20131009

REACTIONS (3)
  - Adenoviral haemorrhagic cystitis [Recovering/Resolving]
  - Thrombotic microangiopathy [Recovering/Resolving]
  - Post transplant lymphoproliferative disorder [Fatal]

NARRATIVE: CASE EVENT DATE: 20130912
